FAERS Safety Report 7007036-5 (Version None)
Quarter: 2010Q3

REPORT INFORMATION
  Report Type: 
  Country: None (occurrence: None)
  Receive Date: 20100922
  Receipt Date: 20100909
  Transmission Date: 20110219
  Serious: Yes (Other)
  Sender: FDA-Public Use
  Company Number: PHHY2010BR59632

PATIENT
  Sex: Female

DRUGS (8)
  1. EXFORGE [Suspect]
     Indication: HYPERTENSION
     Dosage: ONE TABLET (160/5 MG) IN THE MORNING
     Route: 048
     Dates: start: 20100827
  2. TICLID [Concomitant]
     Indication: BLOOD CHOLESTEROL INCREASED
     Dosage: 1 TABLET (2520 MG) IN THE MORNING
     Route: 048
  3. GLYBURIDE [Concomitant]
     Indication: DIABETES MELLITUS
     Dosage: 1 TABLET (5 MG) BEFORE THE BREAKFAST
     Route: 048
  4. SUSTRATE [Concomitant]
     Indication: MUSCULOSKELETAL STIFFNESS
     Dosage: 1 TABLET 3 TIMES DAILY [MORNING, AFTERNOON AND NIGHT]
     Route: 048
  5. METOPROLOL SUCCINATE [Concomitant]
     Indication: HYPERTENSION
     Dosage: 1 TABLET EVERY 12 HOUR
     Route: 048
     Dates: start: 20100831
  6. METFORMIN [Concomitant]
     Indication: DIABETES MELLITUS
     Dosage: 1 TABLET TWICE DAILY [LUNCH AND DINNER]
     Route: 048
     Dates: start: 20100831
  7. PURAN T4 [Concomitant]
     Indication: HYPERTHYROIDISM
     Dosage: 1 TABLET (25 MG) IN FASTING
     Route: 048
     Dates: start: 20100831
  8. SIMVASTATIN [Concomitant]
     Dosage: ONE TABLET (20 MG) AT NIGHT
     Route: 048
     Dates: start: 20100831

REACTIONS (2)
  - BLOOD PRESSURE INADEQUATELY CONTROLLED [None]
  - HYPERTENSION [None]
